FAERS Safety Report 4631501-9 (Version None)
Quarter: 2005Q2

REPORT INFORMATION
  Report Type: 
  Country: None (occurrence: None)
  Receive Date: 20050407
  Receipt Date: 20050401
  Transmission Date: 20051028
  Serious: Yes (Hospitalization)
  Sender: FDA-Public Use
  Company Number: 2005PK00533

PATIENT
  Age: 65 Year
  Sex: Female
  Weight: 85 kg

DRUGS (1)
  1. NOLVADEX [Suspect]
     Indication: BREAST CANCER
     Dosage: 30 MG DAILY PO
     Route: 048
     Dates: start: 20010607

REACTIONS (3)
  - DYSPNOEA [None]
  - STRIDOR [None]
  - VOCAL CORD PARALYSIS [None]
